FAERS Safety Report 15135290 (Version 2)
Quarter: 2018Q3

REPORT INFORMATION
  Report Type: Spontaneous
  Country: JP (occurrence: JP)
  Receive Date: 20180712
  Receipt Date: 20180720
  Transmission Date: 20181010
  Serious: Yes (Other)
  Sender: FDA-Public Use
  Company Number: JP-JNJFOC-20180632259

PATIENT
  Age: 4 Year
  Sex: Female
  Weight: 17 kg

DRUGS (5)
  1. TOPINA [Suspect]
     Active Substance: TOPIRAMATE
     Indication: PARTIAL SEIZURES
     Route: 048
     Dates: start: 201803
  2. DEPAKINE [Concomitant]
     Active Substance: VALPROATE SODIUM
     Route: 065
  3. TOPINA [Suspect]
     Active Substance: TOPIRAMATE
     Indication: PARTIAL SEIZURES
     Route: 048
  4. LAMICTAL [Concomitant]
     Active Substance: LAMOTRIGINE
     Indication: PRODUCT USED FOR UNKNOWN INDICATION
     Route: 065
  5. TOPINA [Suspect]
     Active Substance: TOPIRAMATE
     Indication: PARTIAL SEIZURES
     Route: 048

REACTIONS (2)
  - Weight increased [Unknown]
  - Epilepsy [Unknown]
